FAERS Safety Report 9713502 (Version 1)
Quarter: 2013Q4

REPORT INFORMATION
  Report Type: Spontaneous
  Country: US (occurrence: None)
  Receive Date: 20131125
  Receipt Date: 20131125
  Transmission Date: 20140711
  Serious: Yes (Hospitalization)
  Sender: FDA-Public Use
  Company Number: None

PATIENT
  Age: 64 Year
  Sex: Male
  Weight: 118.2 kg

DRUGS (2)
  1. BICALUTAMIDE [Suspect]
  2. LEUPROLIDE ACETATE [Suspect]

REACTIONS (4)
  - Agitation [None]
  - Anxiety [None]
  - Diarrhoea [None]
  - Urinary incontinence [None]
